FAERS Safety Report 4556739-0 (Version None)
Quarter: 2005Q1

REPORT INFORMATION
  Report Type: 
  Country: None (occurrence: None)
  Receive Date: 20050114
  Receipt Date: 20050104
  Transmission Date: 20050727
  Serious: Yes (Other)
  Sender: FDA-Public Use
  Company Number: 050002

PATIENT
  Age: 11 Year
  Sex: Male

DRUGS (1)
  1. GOLYTELY [Suspect]
     Indication: COLONOSCOPY
     Dates: start: 20050104

REACTIONS (2)
  - MEDICAL DEVICE COMPLICATION [None]
  - VOMITING [None]
